FAERS Safety Report 23632751 (Version 1)
Quarter: 2024Q1

REPORT INFORMATION
  Report Type: Report from Study
  Country: US (occurrence: US)
  Receive Date: 20240314
  Receipt Date: 20240314
  Transmission Date: 20240410
  Serious: Yes (Hospitalization, Other)
  Sender: FDA-Public Use
  Company Number: US-ARGENX-2022-ARGX-US001771

PATIENT

DRUGS (9)
  1. VYVGART [Suspect]
     Active Substance: EFGARTIGIMOD ALFA-FCAB
     Indication: Myasthenia gravis
     Dosage: 1060 MG, 1/WEEK
     Route: 042
     Dates: start: 20220829
  2. VYVGART [Suspect]
     Active Substance: EFGARTIGIMOD ALFA-FCAB
     Dosage: UNK
     Route: 042
  3. MYCOPHENOLIC ACID [Concomitant]
     Active Substance: MYCOPHENOLIC ACID
     Indication: Product used for unknown indication
  4. PREDNISONE [Concomitant]
     Active Substance: PREDNISONE
     Indication: Product used for unknown indication
     Route: 065
  5. PYRIDOSTIGMINE [Concomitant]
     Active Substance: PYRIDOSTIGMINE
     Indication: Product used for unknown indication
     Dosage: UNK, QID
     Route: 065
  6. PYRIDOSTIGMINE [Concomitant]
     Active Substance: PYRIDOSTIGMINE
     Dosage: UNK, PRN
     Route: 065
  7. CALCIUM\VITAMIN D [Concomitant]
     Active Substance: CALCIUM\VITAMIN D
     Indication: Product used for unknown indication
  8. MESTINON [Concomitant]
     Active Substance: PYRIDOSTIGMINE BROMIDE
     Indication: Product used for unknown indication
     Dosage: UNK
     Route: 065
  9. IRON [Concomitant]
     Active Substance: IRON
     Indication: Product used for unknown indication
     Dosage: UNK
     Route: 065

REACTIONS (22)
  - Viral infection [Unknown]
  - Pneumonia [Unknown]
  - Myasthenia gravis crisis [Unknown]
  - Fatigue [Not Recovered/Not Resolved]
  - Myalgia [Not Recovered/Not Resolved]
  - Gastrooesophageal reflux disease [Unknown]
  - Dyspnoea at rest [Unknown]
  - Sleep apnoea syndrome [Unknown]
  - Muscular weakness [Unknown]
  - Pain [Unknown]
  - Blood urine present [Unknown]
  - Therapeutic product effect decreased [Unknown]
  - COVID-19 [Recovering/Resolving]
  - Urinary tract infection [Recovering/Resolving]
  - Dysphagia [Recovering/Resolving]
  - Sneezing [Recovered/Resolved]
  - Nasal congestion [Recovered/Resolved]
  - Asthenia [Recovered/Resolved]
  - Rash [Recovered/Resolved]
  - Cough [Recovered/Resolved]
  - Depression [Unknown]
  - Fatigue [Unknown]

NARRATIVE: CASE EVENT DATE: 20220830
